FAERS Safety Report 12917973 (Version 2)
Quarter: 2017Q1

REPORT INFORMATION
  Report Type: Spontaneous
  Country: JP (occurrence: JP)
  Receive Date: 20161107
  Receipt Date: 20170203
  Transmission Date: 20170428
  Serious: Yes (Death, Hospitalization, Other)
  Sender: FDA-Public Use
  Company Number: JP-AMGEN-JPNSP2016154446

PATIENT
  Age: 91 Year
  Sex: Female
  Weight: 35 kg

DRUGS (12)
  1. PREDNISOLONE. [Suspect]
     Active Substance: PREDNISOLONE
     Indication: RHEUMATOID ARTHRITIS
     Dosage: 1 MG, ONCE DAILY (AFTER BREAKFAST)
     Route: 048
     Dates: start: 20140610, end: 20161011
  2. TRAMCET [Suspect]
     Active Substance: ACETAMINOPHEN\TRAMADOL
     Indication: RHEUMATOID ARTHRITIS
     Dosage: 2 DF, TWICE DAILY
     Route: 048
     Dates: start: 20150708, end: 20161011
  3. TRAMCET [Suspect]
     Active Substance: ACETAMINOPHEN\TRAMADOL
     Indication: OSTEOARTHRITIS
  4. OFLOXACIN. [Concomitant]
     Active Substance: OFLOXACIN
     Indication: CONJUNCTIVITIS
     Dosage: UNK, AS NEEDED
     Route: 047
     Dates: start: 20130116, end: 20161011
  5. EYECARE [Concomitant]
     Indication: DRY EYE
     Dosage: UNK, AS NEEDED
     Route: 047
     Dates: start: 20130116, end: 20161011
  6. ENBREL [Suspect]
     Active Substance: ETANERCEPT
     Indication: RHEUMATOID ARTHRITIS
     Dosage: 25 MG, ONCE WEEKLY
     Route: 058
     Dates: start: 20121024, end: 20140610
  7. CARERAM [Suspect]
     Active Substance: IGURATIMOD
     Indication: RHEUMATOID ARTHRITIS
     Dosage: 25 MG, ONCE DAILY (AFTER SUPPER)
     Route: 048
     Dates: start: 20160412, end: 20161011
  8. MOHRUS [Concomitant]
     Active Substance: KETOPROFEN
     Indication: OSTEOARTHRITIS
     Dosage: UNK, AS NEEDED
     Route: 062
     Dates: start: 20131225, end: 20161012
  9. ALLOPURINOL. [Suspect]
     Active Substance: ALLOPURINOL
     Indication: HYPERURICAEMIA
     Dosage: 50 MG, ONCE DAILY (AFTER SUPPER)
     Route: 048
     Dates: start: 20130904, end: 20160930
  10. ENBREL [Suspect]
     Active Substance: ETANERCEPT
     Dosage: 25 MG, TWICE WEEKLY
     Route: 065
     Dates: start: 20140610, end: 20161011
  11. PROTECADIN [Suspect]
     Active Substance: LAFUTIDINE
     Indication: GASTRITIS
     Dosage: 10 MG, ONCE DAILY (AFTER SUPPER)
     Route: 048
     Dates: start: 20121212, end: 20161011
  12. FELBINAC [Concomitant]
     Active Substance: FELBINAC
     Indication: BACK PAIN
     Dosage: UNK, AS NEEDED
     Route: 062
     Dates: start: 20090204, end: 20161012

REACTIONS (9)
  - Respiratory distress [Unknown]
  - Hypophagia [Unknown]
  - Activities of daily living impaired [Unknown]
  - Renal failure [Fatal]
  - Condition aggravated [Fatal]
  - Weight decreased [Unknown]
  - Azotaemia [Fatal]
  - White blood cell count increased [Unknown]
  - Muscular weakness [Unknown]

NARRATIVE: CASE EVENT DATE: 20160608
